FAERS Safety Report 21230737 (Version 1)
Quarter: 2022Q3

REPORT INFORMATION
  Report Type: Report from Study
  Country: CA (occurrence: CA)
  Receive Date: 20220819
  Receipt Date: 20220819
  Transmission Date: 20221027
  Serious: Yes (Hospitalization, Other)
  Sender: FDA-Public Use
  Company Number: CA-ABBVIE-22K-028-4506648-00

PATIENT
  Sex: Female

DRUGS (2)
  1. RINVOQ [Suspect]
     Active Substance: UPADACITINIB
     Indication: Rheumatoid arthritis
     Route: 048
     Dates: start: 20211004
  2. METHOTREXATE [Suspect]
     Active Substance: METHOTREXATE
     Indication: Product used for unknown indication
     Route: 065

REACTIONS (15)
  - Lung disorder [Unknown]
  - Malaise [Unknown]
  - Bone marrow failure [Not Recovered/Not Resolved]
  - Pneumonia [Unknown]
  - Dizziness [Unknown]
  - Vertigo [Unknown]
  - Tremor [Not Recovered/Not Resolved]
  - Dysphonia [Not Recovered/Not Resolved]
  - Liver disorder [Unknown]
  - Arthralgia [Unknown]
  - Oxygen saturation decreased [Unknown]
  - Painful respiration [Not Recovered/Not Resolved]
  - Foot fracture [Unknown]
  - Head injury [Unknown]
  - Haemoglobin decreased [Unknown]
